FAERS Safety Report 5876473-4 (Version None)
Quarter: 2008Q3

REPORT INFORMATION
  Report Type: 
  Country: None (occurrence: None)
  Receive Date: 20080910
  Receipt Date: 20080904
  Transmission Date: 20090109
  Serious: Yes (Death, Hospitalization)
  Sender: FDA-Public Use
  Company Number: A0745942A

PATIENT
  Age: 82 Year
  Sex: Male

DRUGS (3)
  1. ADVAIR DISKUS 100/50 [Suspect]
     Indication: CHRONIC OBSTRUCTIVE PULMONARY DISEASE
     Dosage: 1PUFF TWICE PER DAY
     Route: 055
  2. DIALYSIS [Concomitant]
  3. HEART MEDICATION [Concomitant]

REACTIONS (3)
  - DEATH [None]
  - HAEMORRHAGE [None]
  - QUALITY OF LIFE DECREASED [None]
